FAERS Safety Report 6197340-5 (Version None)
Quarter: 2009Q2

REPORT INFORMATION
  Report Type: 
  Country: None (occurrence: None)
  Receive Date: 20090521
  Receipt Date: 20090518
  Transmission Date: 20091009
  Serious: Yes (Hospitalization)
  Sender: FDA-Public Use
  Company Number: JP-BAYER-200813158BYL

PATIENT
  Age: 83 Year
  Sex: Male
  Weight: 40 kg

DRUGS (9)
  1. CIPROXAN-I.V. [Suspect]
     Indication: CHRONIC OBSTRUCTIVE PULMONARY DISEASE
     Dosage: TOTAL DAILY DOSE: 300 MG  UNIT DOSE: 300 MG
     Route: 041
     Dates: start: 20080709, end: 20080709
  2. ROCEPHIN [Concomitant]
     Indication: CHRONIC OBSTRUCTIVE PULMONARY DISEASE
     Dosage: TOTAL DAILY DOSE: 2.0 G
     Route: 042
     Dates: start: 20080710, end: 20080717
  3. UNIPHYL LA [Concomitant]
     Dosage: TOTAL DAILY DOSE: 400 MG
     Route: 048
     Dates: start: 20080709
  4. ONON [Concomitant]
     Dosage: TOTAL DAILY DOSE: 450 MG
     Route: 048
     Dates: start: 20080709
  5. GASTER D [Concomitant]
     Dosage: TOTAL DAILY DOSE: 40 MG
     Route: 048
     Dates: start: 20080709
  6. CLARITHROMYCIN [Concomitant]
     Dosage: TOTAL DAILY DOSE: 200 MG
     Route: 048
     Dates: start: 20080709
  7. MUCODYNE [Concomitant]
     Dosage: TOTAL DAILY DOSE: 1500 MG
     Route: 048
     Dates: start: 20080709
  8. PRORENAL [Concomitant]
     Dosage: TOTAL DAILY DOSE: 30 ?G
     Dates: start: 20080709
  9. SEISHOKU [Concomitant]
     Dosage: TOTAL DAILY DOSE: 200 ML
     Route: 041
     Dates: start: 20080710, end: 20080710

REACTIONS (1)
  - ILEUS PARALYTIC [None]
